FAERS Safety Report 6671505-8 (Version None)
Quarter: 2010Q2

REPORT INFORMATION
  Report Type: 
  Country: None (occurrence: None)
  Receive Date: 20100407
  Receipt Date: 20100329
  Transmission Date: 20101027
  Serious: Yes (Life-Threatening, Hospitalization)
  Sender: FDA-Public Use
  Company Number: JP-SANOFI-AVENTIS-2010SA007352

PATIENT
  Age: 77 Year
  Sex: Male
  Weight: 47 kg

DRUGS (7)
  1. TAXOTERE [Suspect]
     Route: 041
     Dates: start: 20100115, end: 20100115
  2. TAXOTERE [Suspect]
     Route: 041
     Dates: start: 20100115, end: 20100115
  3. FAMOTIDINE [Concomitant]
     Route: 048
  4. OLMESARTAN MEDOXOMIL [Concomitant]
     Route: 048
  5. CARVEDILOL [Concomitant]
     Route: 048
     Dates: end: 20100121
  6. SUNRYTHM [Concomitant]
     Route: 048
  7. VASOLAN [Concomitant]
     Route: 048

REACTIONS (4)
  - ATRIAL FIBRILLATION [None]
  - ATRIAL FLUTTER [None]
  - PRESYNCOPE [None]
  - SINUS BRADYCARDIA [None]
